FAERS Safety Report 7422238-1 (Version None)
Quarter: 2011Q2

REPORT INFORMATION
  Report Type: 
  Country: None (occurrence: None)
  Receive Date: 20110419
  Receipt Date: 20110414
  Transmission Date: 20111010
  Serious: Yes (Death)
  Sender: FDA-Public Use
  Company Number: CN-BAYER-2011-030396

PATIENT
  Age: 75 Year
  Sex: Female

DRUGS (2)
  1. AVELOX [Suspect]
     Dosage: 400 MG, QD
     Route: 048
  2. AVELOX [Suspect]
     Indication: BRONCHITIS
     Dosage: 400 MG, QD
     Route: 042

REACTIONS (5)
  - ATRIAL FIBRILLATION [None]
  - CONVULSION [None]
  - GAZE PALSY [None]
  - LOSS OF CONSCIOUSNESS [None]
  - EPILEPSY [None]
